FAERS Safety Report 4888977-1 (Version None)
Quarter: 2005Q4

REPORT INFORMATION
  Report Type: 
  Country: None (occurrence: None)
  Receive Date: 20051215
  Receipt Date: 20050131
  Transmission Date: 20060501
  Serious: Yes (Hospitalization)
  Sender: FDA-Public Use
  Company Number: 2005025170

PATIENT
  Age: 37 Year
  Sex: Female
  Weight: 68.0396 kg

DRUGS (1)
  1. BEXTRA [Suspect]
     Indication: ARTHRITIS
     Dosage: (DAILY),ORAL
     Route: 048
     Dates: start: 20040501, end: 20040617

REACTIONS (2)
  - MIGRAINE [None]
  - TRANSIENT ISCHAEMIC ATTACK [None]
